FAERS Safety Report 13333419 (Version 1)
Quarter: 2017Q1

REPORT INFORMATION
  Report Type: Spontaneous
  Country: US (occurrence: US)
  Receive Date: 20170314
  Receipt Date: 20170314
  Transmission Date: 20170428
  Serious: Yes (Other)
  Sender: FDA-Public Use
  Company Number: US-B. BRAUN MEDICAL INC.-1064219

PATIENT
  Age: 40 Year
  Sex: Female

DRUGS (1)
  1. 0.9% SODIUM CHLORIDE IRRIGATION [Suspect]
     Active Substance: SODIUM CHLORIDE

REACTIONS (4)
  - Arthritis [None]
  - Product package associated injury [None]
  - Product closure removal difficult [None]
  - Tendonitis [None]

NARRATIVE: CASE EVENT DATE: 20160920
